FAERS Safety Report 18905243 (Version 1)
Quarter: 2021Q1

REPORT INFORMATION
  Report Type: Spontaneous
  Country: DE (occurrence: DE)
  Receive Date: 20210217
  Receipt Date: 20210217
  Transmission Date: 20210420
  Serious: Yes (Other)
  Sender: FDA-Public Use
  Company Number: NVSC2021DE034913

PATIENT
  Sex: Male

DRUGS (3)
  1. SANDIMMUN [Suspect]
     Active Substance: CYCLOSPORINE
     Indication: PRODUCT USED FOR UNKNOWN INDICATION
     Dosage: 400 MG (250 MG IN THE MORNING AND 150 MG IN EVENING)
     Route: 048
     Dates: start: 202009
  2. SANDIMMUN [Suspect]
     Active Substance: CYCLOSPORINE
     Indication: PRODUCT USED FOR UNKNOWN INDICATION
     Dosage: 75 MG
     Route: 042
  3. SANDIMMUN [Suspect]
     Active Substance: CYCLOSPORINE

REACTIONS (2)
  - Short-bowel syndrome [Not Recovered/Not Resolved]
  - Drug level fluctuating [Not Recovered/Not Resolved]
